FAERS Safety Report 25269532 (Version 1)
Quarter: 2025Q2

REPORT INFORMATION
  Report Type: Spontaneous
  Country: US (occurrence: US)
  Receive Date: 20250505
  Receipt Date: 20250505
  Transmission Date: 20250716
  Serious: No
  Sender: BLUEPRINT MEDICINES
  Company Number: US-Blueprint Medicines Corporation-2025-AER-00898

PATIENT
  Age: 86 Year
  Sex: Female

DRUGS (1)
  1. AYVAKIT [Suspect]
     Active Substance: AVAPRITINIB
     Indication: Mastocytoma
     Route: 065
     Dates: start: 20250121

REACTIONS (4)
  - Dyspnoea [Unknown]
  - Joint swelling [Unknown]
  - Peripheral swelling [Unknown]
  - Gait disturbance [Unknown]
